FAERS Safety Report 14880364 (Version 2)
Quarter: 2018Q4

REPORT INFORMATION
  Report Type: Spontaneous
  Country: BR (occurrence: BR)
  Receive Date: 20180511
  Receipt Date: 20181119
  Transmission Date: 20190204
  Serious: Yes (Hospitalization, Other)
  Sender: FDA-Public Use
  Company Number: BR-PFIZER INC-2018119742

PATIENT
  Sex: Female

DRUGS (5)
  1. OMEPRAZOLE. [Concomitant]
     Active Substance: OMEPRAZOLE
     Dosage: UNK
  2. LORAX [Suspect]
     Active Substance: LORAZEPAM
     Indication: NERVOUSNESS
     Dosage: 3  TO 4 TABLETS DAILY
     Dates: start: 1986
  3. LORAX [Suspect]
     Active Substance: LORAZEPAM
     Indication: ANXIETY
  4. LOSARTAN. [Concomitant]
     Active Substance: LOSARTAN
     Dosage: ^1^ DAILY
  5. PROPANOLOL [Concomitant]
     Active Substance: PROPRANOLOL HYDROCHLORIDE
     Dosage: UNK

REACTIONS (10)
  - Somnolence [Unknown]
  - Feeling of despair [Not Recovered/Not Resolved]
  - Fear [Recovered/Resolved]
  - Nervousness [Recovered/Resolved]
  - Feeling abnormal [Not Recovered/Not Resolved]
  - Anxiety [Recovered/Resolved]
  - Insomnia [Recovered/Resolved]
  - Cholelithiasis [Recovered/Resolved]
  - Drug dependence [Not Recovered/Not Resolved]
  - Intentional product use issue [Unknown]

NARRATIVE: CASE EVENT DATE: 2002
